FAERS Safety Report 9642045 (Version 1)
Quarter: 2013Q4

REPORT INFORMATION
  Report Type: Spontaneous
  Country: JP (occurrence: JP)
  Receive Date: 20131023
  Receipt Date: 20131023
  Transmission Date: 20140711
  Serious: Yes (Other)
  Sender: FDA-Public Use
  Company Number: JP-OTSUKA-JP-2013-14471

PATIENT
  Age: 75 Year
  Sex: Male
  Weight: 65 kg

DRUGS (3)
  1. PLETAAL [Suspect]
     Indication: THROMBOSIS IN DEVICE
     Dosage: UNK
     Route: 065
  2. ASPIRIN [Concomitant]
     Indication: THROMBOSIS IN DEVICE
     Dosage: UNK
     Route: 065
  3. CLOPIDOGREL SULFATE [Concomitant]
     Indication: THROMBOSIS IN DEVICE
     Dosage: UNK
     Route: 065

REACTIONS (1)
  - Large intestinal ulcer [Unknown]
